FAERS Safety Report 8069235-3 (Version None)
Quarter: 2012Q1

REPORT INFORMATION
  Report Type: 
  Country: None (occurrence: None)
  Receive Date: 20120125
  Receipt Date: 20120116
  Transmission Date: 20120608
  Serious: Yes (Other)
  Sender: FDA-Public Use
  Company Number: US-BRISTOL-MYERS SQUIBB COMPANY-16351223

PATIENT
  Age: 59 Year
  Sex: Male

DRUGS (1)
  1. CEFEPIME [Suspect]
     Indication: SEPSIS

REACTIONS (3)
  - ENCEPHALOPATHY [None]
  - APHASIA [None]
  - STATUS EPILEPTICUS [None]
